FAERS Safety Report 9994752 (Version 3)
Quarter: 2014Q2

REPORT INFORMATION
  Report Type: Spontaneous
  Country: IT (occurrence: None)
  Receive Date: 20140306
  Receipt Date: 20140507
  Transmission Date: 20141212
  Serious: No
  Sender: FDA-Public Use
  Company Number: 2014AP001653

PATIENT
  Age: 27 Year
  Sex: Male

DRUGS (2)
  1. LEVOFLOXACIN [Suspect]
     Indication: UPPER RESPIRATORY TRACT INFECTION
     Dates: start: 20140210, end: 20140210
  2. LEVOFLOXACIN (LEVOFLOXACIN) [Concomitant]

REACTIONS (5)
  - Dyspnoea [None]
  - Eye oedema [None]
  - Dyspnoea [None]
  - Dysphonia [None]
  - Drug administration error [None]
